FAERS Safety Report 6062812-0 (Version None)
Quarter: 2009Q1

REPORT INFORMATION
  Report Type: 
  Country: None (occurrence: None)
  Receive Date: 20090203
  Receipt Date: 20090126
  Transmission Date: 20090719
  Serious: Yes (Other)
  Sender: FDA-Public Use
  Company Number: SE-AMGEN-US320450

PATIENT
  Sex: Female

DRUGS (1)
  1. ENBREL [Suspect]
     Indication: RHEUMATOID ARTHRITIS
     Dosage: DOSE UNKNOWN
     Route: 065
     Dates: start: 20080515, end: 20081002

REACTIONS (4)
  - DEEP VEIN THROMBOSIS [None]
  - LIVER DISORDER [None]
  - PARAESTHESIA [None]
  - VISION BLURRED [None]
